FAERS Safety Report 8928881 (Version 2)
Quarter: 2012Q4

REPORT INFORMATION
  Report Type: 
  Country: IT (occurrence: IT)
  Receive Date: 20121128
  Receipt Date: 20121221
  Transmission Date: 20130627
  Serious: Yes (Life-Threatening, Hospitalization)
  Sender: FDA-Public Use
  Company Number: IT-AMGEN-ITASP2012075016

PATIENT
  Age: 71 Year
  Sex: Female
  Weight: 48 kg

DRUGS (4)
  1. DARBEPOETIN ALFA [Suspect]
     Indication: PRODUCT USED FOR UNKNOWN INDICATION
     Dosage: 500 mug, qd
     Dates: start: 20110830
  2. BEVACIZUMAB [Suspect]
     Dosage: 15 mg/kg, q3wk
     Route: 042
     Dates: start: 20110809, end: 20111108
  3. CARBOPLATIN [Concomitant]
     Indication: MALIGNANT PERITONEAL NEOPLASM
     Dosage: 270 mg, q3wk
     Route: 042
     Dates: start: 20110405
  4. PACLITAXEL [Concomitant]
     Indication: MALIGNANT PERITONEAL NEOPLASM
     Dosage: 248 mg, UNK
     Route: 042
     Dates: start: 20110405

REACTIONS (1)
  - Pulmonary embolism [Recovered/Resolved]
